FAERS Safety Report 25708458 (Version 1)
Quarter: 2025Q3

REPORT INFORMATION
  Report Type: Spontaneous
  Country: IL (occurrence: IL)
  Receive Date: 20250821
  Receipt Date: 20250821
  Transmission Date: 20251020
  Serious: Yes (Other)
  Sender: BRISTOL-MYERS SQUIBB COMPANY
  Company Number: IL-BRISTOL-MYERS SQUIBB COMPANY-2025-115842

PATIENT
  Age: 82 Year
  Sex: Female

DRUGS (1)
  1. REBLOZYL [Suspect]
     Active Substance: LUSPATERCEPT-AAMT
     Indication: Myelodysplastic syndrome
     Dates: start: 2025

REACTIONS (1)
  - Gastrointestinal haemorrhage [Unknown]
